FAERS Safety Report 7455228-3 (Version None)
Quarter: 2011Q2

REPORT INFORMATION
  Report Type: 
  Country: None (occurrence: None)
  Receive Date: 20110503
  Receipt Date: 20110419
  Transmission Date: 20111010
  Serious: Yes (Other)
  Sender: FDA-Public Use
  Company Number: PHHY2011OM33288

PATIENT
  Age: 45 Year
  Sex: Female

DRUGS (1)
  1. ZOLEDRONIC ACID [Suspect]
     Indication: OSTEOPENIA
     Dosage: 5 MG, ANNUALLY
     Route: 042
     Dates: start: 20110406

REACTIONS (4)
  - WEIGHT INCREASED [None]
  - CHEST DISCOMFORT [None]
  - OEDEMA [None]
  - CHEST PAIN [None]
